FAERS Safety Report 6411401-4 (Version None)
Quarter: 2009Q4

REPORT INFORMATION
  Report Type: 
  Country: None (occurrence: None)
  Receive Date: 20091023
  Receipt Date: 20091012
  Transmission Date: 20100525
  Serious: Yes (Other)
  Sender: FDA-Public Use
  Company Number: US-JNJFOC-20090800324

PATIENT
  Sex: Male
  Weight: 104.33 kg

DRUGS (25)
  1. REMICADE [Suspect]
     Indication: CROHN'S DISEASE
     Dosage: RECEIVED 6 DOSES
     Route: 042
     Dates: start: 20060124, end: 20060501
  2. FENTANYL-100 [Concomitant]
     Dosage: 25 MCG/HR
     Route: 062
  3. REQUIP [Concomitant]
     Route: 048
  4. CYMBALTA [Concomitant]
     Indication: PAIN
  5. ASACOL [Concomitant]
     Indication: CROHN'S DISEASE
     Route: 048
  6. NULEV [Concomitant]
     Route: 060
  7. IMODIUM [Concomitant]
  8. RELPAX [Concomitant]
     Indication: HEADACHE
  9. PROVIGIL [Concomitant]
  10. CLARINEX [Concomitant]
     Route: 048
  11. BENADRYL [Concomitant]
     Indication: HYPERSENSITIVITY
  12. PROMETHAZINE [Concomitant]
     Route: 048
  13. DIFLUCAN [Concomitant]
     Route: 048
  14. AMPHETAMINE AND DEXTROAMPHETAMINE SALTS [Concomitant]
  15. CLONIDINE [Concomitant]
     Route: 048
  16. MORPHINE SULFATE [Concomitant]
     Indication: PAIN
  17. BACLOFEN [Concomitant]
  18. KADIAN [Concomitant]
  19. PRISTIQ [Concomitant]
     Route: 048
  20. WELLBUTRIN [Concomitant]
  21. ASCORBIC ACID [Concomitant]
  22. VITAMIN B COMPLEX CAP [Concomitant]
  23. ERGOCALCIFEROL [Concomitant]
  24. TESTOSTERONE [Concomitant]
  25. ADDERALL 10 [Concomitant]

REACTIONS (66)
  - ABDOMINAL DISTENSION [None]
  - ABDOMINAL PAIN [None]
  - ALANINE AMINOTRANSFERASE INCREASED [None]
  - AMMONIA INCREASED [None]
  - ANTINUCLEAR ANTIBODY POSITIVE [None]
  - ANXIETY [None]
  - ARTHRALGIA [None]
  - ASTHENIA [None]
  - ATELECTASIS [None]
  - BACK PAIN [None]
  - BLOOD SODIUM INCREASED [None]
  - BLOOD TESTOSTERONE DECREASED [None]
  - CHANGE OF BOWEL HABIT [None]
  - CLUMSINESS [None]
  - CONSTIPATION [None]
  - COUGH [None]
  - DEMYELINATION [None]
  - DEPRESSION [None]
  - DIARRHOEA [None]
  - DISTURBANCE IN ATTENTION [None]
  - DIZZINESS [None]
  - DRY MOUTH [None]
  - DRY SKIN [None]
  - DYSPEPSIA [None]
  - DYSPNOEA [None]
  - ERECTILE DYSFUNCTION [None]
  - EYE PAIN [None]
  - FALL [None]
  - FATIGUE [None]
  - GAIT DISTURBANCE [None]
  - GENERAL PHYSICAL HEALTH DETERIORATION [None]
  - GRIEF REACTION [None]
  - HAIR GROWTH ABNORMAL [None]
  - HEADACHE [None]
  - HEARING IMPAIRED [None]
  - INCONTINENCE [None]
  - INSULIN-LIKE GROWTH FACTOR DECREASED [None]
  - JOINT SWELLING [None]
  - LACRIMATION INCREASED [None]
  - LIBIDO DECREASED [None]
  - LYMPHOCYTE PERCENTAGE DECREASED [None]
  - MEMORY IMPAIRMENT [None]
  - MOOD SWINGS [None]
  - MUSCLE SPASMS [None]
  - MUSCULOSKELETAL PAIN [None]
  - MYOPATHY [None]
  - MYOSITIS [None]
  - NAIL GROWTH ABNORMAL [None]
  - NAUSEA [None]
  - NECK PAIN [None]
  - NERVOUSNESS [None]
  - NEUROMYOPATHY [None]
  - NEUROPATHY PERIPHERAL [None]
  - NEUTROPHIL PERCENTAGE INCREASED [None]
  - NIGHT SWEATS [None]
  - PHOTOPHOBIA [None]
  - RED BLOOD CELL COUNT INCREASED [None]
  - SEASONAL ALLERGY [None]
  - SENSORY DISTURBANCE [None]
  - SLEEP DISORDER [None]
  - SOMNOLENCE [None]
  - SYNOVIAL CYST [None]
  - TESTICULAR PAIN [None]
  - THIRST [None]
  - VISION BLURRED [None]
  - WEIGHT INCREASED [None]
